FAERS Safety Report 9616162 (Version 1)
Quarter: 2013Q4

REPORT INFORMATION
  Report Type: Spontaneous
  Country: US (occurrence: US)
  Receive Date: 20131011
  Receipt Date: 20131011
  Transmission Date: 20140711
  Serious: Yes (Other)
  Sender: FDA-Public Use
  Company Number: US-AMGEN-USASP2013071493

PATIENT
  Age: 64 Year
  Sex: Male

DRUGS (2)
  1. ENBREL [Suspect]
     Indication: ANKYLOSING SPONDYLITIS
     Dosage: 50 MG, QWK
     Route: 065
     Dates: start: 20110729
  2. ENBREL [Suspect]
     Indication: PSORIATIC ARTHROPATHY

REACTIONS (6)
  - Nephrolithiasis [Recovered/Resolved]
  - Spinal pain [Not Recovered/Not Resolved]
  - Arthralgia [Not Recovered/Not Resolved]
  - Condition aggravated [Not Recovered/Not Resolved]
  - Upper respiratory tract infection [Not Recovered/Not Resolved]
  - Nail psoriasis [Not Recovered/Not Resolved]
